FAERS Safety Report 21543051 (Version 1)
Quarter: 2022Q4

REPORT INFORMATION
  Report Type: Spontaneous
  Country: US (occurrence: None)
  Receive Date: 20221102
  Receipt Date: 20221102
  Transmission Date: 20230113
  Serious: Yes (Other)
  Sender: FDA-Public Use
  Company Number: 2022A358574

PATIENT
  Age: 72 Year
  Sex: Male

DRUGS (4)
  1. LYNPARZA [Suspect]
     Active Substance: OLAPARIB
     Route: 048
  2. LUPRON [Concomitant]
     Active Substance: LEUPROLIDE ACETATE
  3. DOCETAXEL [Concomitant]
     Active Substance: DOCETAXEL
  4. XTANDI [Concomitant]
     Active Substance: ENZALUTAMIDE

REACTIONS (10)
  - Malignant neoplasm progression [Unknown]
  - Loss of personal independence in daily activities [Unknown]
  - Pain in extremity [Unknown]
  - Peripheral swelling [Unknown]
  - Prostatic specific antigen abnormal [Unknown]
  - Pain [Unknown]
  - Muscle disorder [Unknown]
  - Breast disorder male [Unknown]
  - Fatigue [Unknown]
  - Asthenia [Unknown]
